FAERS Safety Report 19959922 (Version 6)
Quarter: 2022Q2

REPORT INFORMATION
  Report Type: Report from Study
  Country: IT (occurrence: IT)
  Receive Date: 20211015
  Receipt Date: 20220418
  Transmission Date: 20220721
  Serious: Yes (Hospitalization)
  Sender: FDA-Public Use
  Company Number: IT-BIOGEN-2021BI01055880

PATIENT
  Age: 69 Year
  Sex: Female
  Weight: 73.5 kg

DRUGS (6)
  1. ADUCANUMAB [Suspect]
     Active Substance: ADUCANUMAB
     Indication: Dementia Alzheimer^s type
     Route: 042
     Dates: start: 20210506
  2. DONEPEZIL [Concomitant]
     Active Substance: DONEPEZIL
     Indication: Dementia Alzheimer^s type
     Route: 048
     Dates: start: 2020
  3. VENLAFAXINE HYDROCHLORIDE [Concomitant]
     Active Substance: VENLAFAXINE HYDROCHLORIDE
     Indication: Depression
     Route: 048
     Dates: start: 2020
  4. RIVOTRIL [Concomitant]
     Active Substance: CLONAZEPAM
     Indication: Essential tremor
     Dosage: 4 ORAL DROPS
     Route: 048
     Dates: start: 2017
  5. ASPIRIN [Concomitant]
     Active Substance: ASPIRIN
     Indication: Hypertension
     Route: 048
     Dates: start: 2017
  6. BLOTRIL [Concomitant]
     Indication: Hypertension
     Route: 048
     Dates: start: 2017

REACTIONS (2)
  - Amyloid related imaging abnormality-oedema/effusion [Recovered/Resolved with Sequelae]
  - Amyloid related imaging abnormality-microhaemorrhages and haemosiderin deposits [Recovered/Resolved with Sequelae]

NARRATIVE: CASE EVENT DATE: 20211004
